FAERS Safety Report 22123374 (Version 2)
Quarter: 2023Q2

REPORT INFORMATION
  Report Type: Other
  Country: PK (occurrence: None)
  Receive Date: 20230322
  Receipt Date: 20230410
  Transmission Date: 20230722
  Serious: Yes (Death)
  Sender: FDA-Public Use
  Company Number: PK-ROCHE-3314334

PATIENT
  Age: 71 Year
  Sex: Male

DRUGS (1)
  1. TECENTRIQ [Suspect]
     Active Substance: ATEZOLIZUMAB
     Indication: Non-small cell lung cancer
     Route: 041
     Dates: start: 20221012

REACTIONS (1)
  - Death [Fatal]
